FAERS Safety Report 7865299-8 (Version None)
Quarter: 2011Q4

REPORT INFORMATION
  Report Type: 
  Country: None (occurrence: None)
  Receive Date: 20111028
  Receipt Date: 20101118
  Transmission Date: 20120403
  Serious: No
  Sender: FDA-Public Use
  Company Number: US-GLAXOSMITHKLINE-A0893239A

PATIENT
  Age: 62 Year
  Sex: Female

DRUGS (7)
  1. LIPITOR [Concomitant]
  2. SINGULAIR [Concomitant]
  3. NASACORT [Concomitant]
  4. AMLODIPINE [Concomitant]
  5. ADVAIR DISKUS 100/50 [Suspect]
     Indication: ASTHMA
     Dosage: 1PUFF PER DAY
     Route: 055
     Dates: start: 20020101
  6. CORTISONE ACETATE [Concomitant]
  7. CAPOTEN [Concomitant]

REACTIONS (3)
  - GLOSSODYNIA [None]
  - WHEEZING [None]
  - TONGUE DISORDER [None]
